FAERS Safety Report 6432146-0 (Version None)
Quarter: 2009Q4

REPORT INFORMATION
  Report Type: 
  Country: None (occurrence: None)
  Receive Date: 20091105
  Receipt Date: 20091027
  Transmission Date: 20100525
  Serious: Yes (Hospitalization)
  Sender: FDA-Public Use
  Company Number: 233924K09USA

PATIENT
  Age: 52 Year
  Sex: Female
  Weight: 55 kg

DRUGS (7)
  1. REBIF [Suspect]
     Indication: MULTIPLE SCLEROSIS
     Dosage: 44 MCG, 3 IN 1 WEEKS, SUBCUTANEOUS
     Route: 058
     Dates: start: 20060724
  2. INDERAL [Concomitant]
  3. NITROGLYCERIN [Concomitant]
  4. LAMICTAL [Concomitant]
  5. SEROQUEL [Concomitant]
  6. DOXYCYCLINE (DOXYCYCLINE /00055701/) [Concomitant]
  7. SYNTHROID [Concomitant]

REACTIONS (3)
  - CHEST PAIN [None]
  - INCORRECT DOSE ADMINISTERED [None]
  - WHITE BLOOD CELL COUNT DECREASED [None]
